FAERS Safety Report 5248438-7 (Version None)
Quarter: 2007Q1

REPORT INFORMATION
  Report Type: 
  Country: None (occurrence: None)
  Receive Date: 20070227
  Receipt Date: 20070216
  Transmission Date: 20070707
  Serious: Yes (Other)
  Sender: FDA-Public Use
  Company Number: FR-MERCK-0702FRA00063

PATIENT
  Age: 27 Year
  Sex: Female

DRUGS (13)
  1. PRIMAXIN [Suspect]
     Indication: INTERVERTEBRAL DISCITIS
     Route: 042
     Dates: start: 20010801, end: 20011001
  2. PRIMAXIN [Suspect]
     Route: 042
     Dates: start: 20011001, end: 20011001
  3. PRIMAXIN [Suspect]
     Route: 042
     Dates: start: 20001001, end: 20010101
  4. PRIMAXIN [Suspect]
     Indication: PSOAS ABSCESS
     Route: 042
     Dates: start: 20010801, end: 20011001
  5. PRIMAXIN [Suspect]
     Route: 042
     Dates: start: 20011001, end: 20011001
  6. PRIMAXIN [Suspect]
     Route: 042
     Dates: start: 20001001, end: 20010101
  7. AMOXICILLIN [Concomitant]
     Indication: INTERVERTEBRAL DISCITIS
     Route: 048
     Dates: start: 20010901
  8. SULFAMETHOXAZOLE AND TRIMETHOPRIM [Concomitant]
     Indication: INTERVERTEBRAL DISCITIS
     Route: 042
     Dates: start: 20010801
  9. SULFAMETHOXAZOLE AND TRIMETHOPRIM [Concomitant]
     Route: 042
     Dates: start: 20001001, end: 20010101
  10. SULFAMETHOXAZOLE AND TRIMETHOPRIM [Concomitant]
     Indication: PSOAS ABSCESS
     Route: 042
     Dates: start: 20010801
  11. SULFAMETHOXAZOLE AND TRIMETHOPRIM [Concomitant]
     Route: 042
     Dates: start: 20001001, end: 20010101
  12. AMIKACIN [Concomitant]
     Indication: INTERVERTEBRAL DISCITIS
     Route: 042
     Dates: start: 20010801, end: 20010901
  13. AMIKACIN [Concomitant]
     Route: 042
     Dates: start: 20001001, end: 20001201

REACTIONS (3)
  - CONVULSION [None]
  - DRUG INEFFECTIVE [None]
  - INCORRECT DRUG ADMINISTRATION DURATION [None]
